FAERS Safety Report 6566952-9 (Version None)
Quarter: 2010Q1

REPORT INFORMATION
  Report Type: 
  Country: None (occurrence: None)
  Receive Date: 20100202
  Receipt Date: 20100122
  Transmission Date: 20100710
  Serious: Yes (Other)
  Sender: FDA-Public Use
  Company Number: US-SANOFI-AVENTIS-2010SA000840

PATIENT
  Sex: Male

DRUGS (6)
  1. SOLOSTAR [Suspect]
     Dates: start: 20091217
  2. SOLOSTAR [Suspect]
  3. SOLOSTAR [Suspect]
  4. SOLOSTAR [Suspect]
  5. SOLOSTAR [Suspect]
  6. LANTUS [Suspect]
     Dosage: DOSE:34 UNIT(S)
     Route: 058
     Dates: start: 20091217

REACTIONS (4)
  - DEVICE MALFUNCTION [None]
  - INJECTION SITE DISCOMFORT [None]
  - INJECTION SITE ERYTHEMA [None]
  - INJECTION SITE HAEMORRHAGE [None]
